FAERS Safety Report 5068597-9 (Version None)
Quarter: 2006Q3

REPORT INFORMATION
  Report Type: 
  Country: None (occurrence: None)
  Receive Date: 20060802
  Receipt Date: 20051220
  Transmission Date: 20061208
  Serious: No
  Sender: FDA-Public Use
  Company Number: US-BRISTOL-MYERS SQUIBB COMPANY-13224118

PATIENT
  Sex: Female

DRUGS (1)
  1. COUMADIN [Suspect]

REACTIONS (5)
  - DYSGEUSIA [None]
  - GINGIVAL BLEEDING [None]
  - HYPOTRICHOSIS [None]
  - MOUTH HAEMORRHAGE [None]
  - WEIGHT INCREASED [None]
